FAERS Safety Report 13344416 (Version 1)
Quarter: 2017Q1

REPORT INFORMATION
  Report Type: Spontaneous
  Country: FR (occurrence: FR)
  Receive Date: 20170317
  Receipt Date: 20170317
  Transmission Date: 20170428
  Serious: Yes (Death, Hospitalization, Other)
  Sender: FDA-Public Use
  Company Number: FR-CIPLA LTD.-2017FR04118

PATIENT

DRUGS (8)
  1. VALPROIC ACID. [Suspect]
     Active Substance: VALPROIC ACID
     Indication: BIPOLAR DISORDER
     Dosage: UNK
     Route: 065
     Dates: start: 20120614
  2. LOXAPINE. [Suspect]
     Active Substance: LOXAPINE
     Indication: COLITIS ISCHAEMIC
     Dosage: UNK
     Route: 048
     Dates: start: 20120614
  3. QUETIAPINE. [Suspect]
     Active Substance: QUETIAPINE
     Indication: BIPOLAR DISORDER
     Dosage: 600 MG/DAY
     Route: 065
     Dates: start: 20120605
  4. DIAZEPAM. [Suspect]
     Active Substance: DIAZEPAM
     Indication: BIPOLAR DISORDER
     Dosage: UNK
     Route: 065
     Dates: start: 20120614
  5. TRAMADOL. [Suspect]
     Active Substance: TRAMADOL
     Indication: COLITIS ISCHAEMIC
     Dosage: UNK
     Route: 065
  6. MORPHINE [Suspect]
     Active Substance: MORPHINE
     Indication: COLITIS ISCHAEMIC
     Dosage: UNK
     Route: 065
  7. RISPERIDONE. [Suspect]
     Active Substance: RISPERIDONE
     Indication: BIPOLAR DISORDER
     Dosage: UNK
     Route: 065
  8. LOXAPINE. [Suspect]
     Active Substance: LOXAPINE
     Dosage: 100MG
     Route: 030

REACTIONS (14)
  - Systemic mycosis [Fatal]
  - Metabolic acidosis [Fatal]
  - Treatment noncompliance [Unknown]
  - Acute kidney injury [Fatal]
  - Cardiac arrest [Fatal]
  - Agitation [Unknown]
  - Intestinal ischaemia [Unknown]
  - Multiple organ dysfunction syndrome [Fatal]
  - Intestinal perforation [Unknown]
  - Aggression [Unknown]
  - Systemic bacterial infection [Fatal]
  - Erectile dysfunction [Unknown]
  - Colitis ischaemic [Unknown]
  - Libido decreased [Unknown]
